FAERS Safety Report 17289833 (Version 10)
Quarter: 2020Q1

REPORT INFORMATION
  Report Type: Report from Study
  Country: DE (occurrence: DE)
  Receive Date: 20200120
  Receipt Date: 20200306
  Transmission Date: 20200409
  Serious: Yes (Hospitalization)
  Sender: FDA-Public Use
  Company Number: DE-EISAI MEDICAL RESEARCH-EC-2020-068721

PATIENT
  Age: 70 Year
  Sex: Female

DRUGS (18)
  1. PEMBROLIZUMAB. [Suspect]
     Active Substance: PEMBROLIZUMAB
     Indication: HEPATOBILIARY CANCER
     Route: 048
     Dates: start: 20200108, end: 20200108
  2. PANTOZOL [Concomitant]
     Active Substance: PANTOPRAZOLE SODIUM
     Dates: start: 201911
  3. CARVEDILOL. [Concomitant]
     Active Substance: CARVEDILOL
     Dates: start: 201911
  4. METFORMIN [Concomitant]
     Active Substance: METFORMIN HYDROCHLORIDE
     Dates: start: 201911, end: 20200115
  5. LOPERAMID [Concomitant]
     Active Substance: LOPERAMIDE
     Dates: start: 20200113
  6. JANUVIA [Concomitant]
     Active Substance: SITAGLIPTIN PHOSPHATE
     Dates: start: 201911, end: 20200115
  7. VALSARTAN. [Concomitant]
     Active Substance: VALSARTAN
     Dates: start: 20200113
  8. LENVATINIB [Suspect]
     Active Substance: LENVATINIB
     Indication: HEPATOBILIARY CANCER
     Route: 048
     Dates: start: 20200108, end: 20200115
  9. LENVATINIB [Suspect]
     Active Substance: LENVATINIB
     Dosage: STARTING DOSE AT 14 MG (FLUCTUATING DOSE)
     Route: 048
     Dates: start: 20200122
  10. FUROSEMIDE. [Concomitant]
     Active Substance: FUROSEMIDE
     Dates: start: 201911
  11. MCP [Concomitant]
     Active Substance: METOCLOPRAMIDE HYDROCHLORIDE
     Dates: start: 20200113, end: 20200125
  12. PEMBROLIZUMAB. [Suspect]
     Active Substance: PEMBROLIZUMAB
     Route: 048
     Dates: start: 20200129
  13. MAGNESIOCARD [Concomitant]
     Active Substance: MAGNESIUM ASPARTATE HYDROCHLORIDE
     Dates: start: 201911
  14. URSOFALK [Concomitant]
     Active Substance: URSODIOL
     Dates: start: 201911
  15. PLAVIX [Concomitant]
     Active Substance: CLOPIDOGREL BISULFATE
     Dates: start: 201911
  16. MOTILIUM [Concomitant]
     Active Substance: DOMPERIDONE
     Dates: start: 201911
  17. ASPIRIN. [Concomitant]
     Active Substance: ASPIRIN
     Dates: start: 201911
  18. LIMPTAR [Concomitant]
     Active Substance: AMINOPHYLLINE\QUININE SULFATE
     Dates: start: 201911

REACTIONS (1)
  - Acute kidney injury [Recovered/Resolved]

NARRATIVE: CASE EVENT DATE: 20200115
